FAERS Safety Report 7639554-0 (Version None)
Quarter: 2011Q3

REPORT INFORMATION
  Report Type: 
  Country: None (occurrence: None)
  Receive Date: 20110727
  Receipt Date: 20110720
  Transmission Date: 20111222
  Serious: Yes (Hospitalization)
  Sender: FDA-Public Use
  Company Number: CH-GLAXOSMITHKLINE-B0735361A

PATIENT
  Age: 68 Year
  Sex: Female

DRUGS (12)
  1. REQUIP [Suspect]
     Indication: PRODUCT USED FOR UNKNOWN INDICATION
     Dosage: 4MG PER DAY
     Route: 048
     Dates: start: 20060101, end: 20110518
  2. FENTANYL [Concomitant]
     Route: 065
  3. CLOZAPINE [Concomitant]
     Dosage: 12.5MG PER DAY
     Route: 048
  4. MADOPAR [Suspect]
     Indication: PRODUCT USED FOR UNKNOWN INDICATION
     Dosage: 437.5MG PER DAY
     Route: 048
     Dates: start: 20060101, end: 20110518
  5. FRAGMIN [Concomitant]
     Route: 058
  6. PK-MERZ [Suspect]
     Indication: PRODUCT USED FOR UNKNOWN INDICATION
     Dosage: 300MG PER DAY
     Route: 048
     Dates: start: 20110420, end: 20110518
  7. TRYPTIZOL [Concomitant]
     Dosage: 25MG PER DAY
     Route: 048
     Dates: start: 20100928, end: 20110518
  8. ASPIRIN [Concomitant]
     Route: 048
  9. HYGROTON [Concomitant]
     Route: 048
  10. OVESTIN [Concomitant]
     Dosage: 1MG PER DAY
     Route: 065
     Dates: start: 20060101, end: 20110518
  11. LORAZEPAM [Concomitant]
     Dosage: 4MG PER DAY
     Route: 042
  12. AKINETON [Concomitant]
     Route: 042

REACTIONS (5)
  - DYSKINESIA [None]
  - ATRIAL FIBRILLATION [None]
  - AGITATION [None]
  - TACHYCARDIA [None]
  - HYPOTENSION [None]
